FAERS Safety Report 17014810 (Version 1)
Quarter: 2019Q4

REPORT INFORMATION
  Report Type: Spontaneous
  Country: BE (occurrence: BE)
  Receive Date: 20191111
  Receipt Date: 20191111
  Transmission Date: 20200122
  Serious: Yes (Other)
  Sender: FDA-Public Use
  Company Number: BE-GLAXOSMITHKLINE-BE2019200671

PATIENT
  Sex: Female

DRUGS (1)
  1. RANITIDINE. [Suspect]
     Active Substance: RANITIDINE
     Indication: PRODUCT USED FOR UNKNOWN INDICATION
     Dosage: IN TOTAL
     Route: 048
     Dates: start: 20190712, end: 2019

REACTIONS (6)
  - Renal impairment [Unknown]
  - Vision blurred [Recovered/Resolved]
  - Dystonia [Not Recovered/Not Resolved]
  - Fatigue [Unknown]
  - Tremor [Not Recovered/Not Resolved]
  - Thyroid hormones increased [Unknown]

NARRATIVE: CASE EVENT DATE: 2019
